FAERS Safety Report 25088675 (Version 1)
Quarter: 2025Q1

REPORT INFORMATION
  Report Type: Spontaneous
  Country: FI (occurrence: FI)
  Receive Date: 20250318
  Receipt Date: 20250318
  Transmission Date: 20250408
  Serious: Yes (Other)
  Sender: ACCORD
  Company Number: None

PATIENT
  Age: 57 Year
  Sex: Male

DRUGS (6)
  1. EZETIMIBE [Suspect]
     Active Substance: EZETIMIBE
     Indication: Hypercholesterolaemia
     Dosage: 1 TABLET ONCE A DAY / 1 TABLET ONCE A DAY
     Dates: start: 20240611, end: 20240930
  2. INSULIN DEGLUDEC [Concomitant]
     Active Substance: INSULIN DEGLUDEC
  3. INSULIN ASPART [Concomitant]
     Active Substance: INSULIN ASPART
  4. THYROXINE [Concomitant]
     Active Substance: LEVOTHYROXINE
  5. RAMIPRIL [Concomitant]
     Active Substance: RAMIPRIL
  6. ROSUVASTATIN [Concomitant]
     Active Substance: ROSUVASTATIN

REACTIONS (3)
  - Alanine aminotransferase increased [Recovered/Resolved]
  - Diabetes mellitus inadequate control [Recovered/Resolved]
  - Increased insulin requirement [Recovered/Resolved]

NARRATIVE: CASE EVENT DATE: 20240829
